FAERS Safety Report 8801136 (Version 1)
Quarter: 2012Q4

REPORT INFORMATION
  Report Type: 
  Country: DE (occurrence: DE)
  Receive Date: 20120921
  Receipt Date: 20120921
  Transmission Date: 20130627
  Serious: Yes (Death, Hospitalization)
  Sender: FDA-Public Use
  Company Number: DE-GLAXOSMITHKLINE-D0077083A

PATIENT
  Sex: Male

DRUGS (3)
  1. ARIXTRA [Suspect]
     Indication: CARDIOVASCULAR DISORDER
     Dosage: 7.5MG Twice per day
     Route: 058
  2. FALITHROM [Concomitant]
     Route: 048
  3. OTHER MEDICATIONS [Concomitant]
     Route: 065

REACTIONS (6)
  - Death [Fatal]
  - Coma [Unknown]
  - Haematoma [Recovered/Resolved]
  - Post procedural haemorrhage [Recovered/Resolved]
  - Prescribed overdose [Unknown]
  - Off label use [Unknown]
